FAERS Safety Report 15793546 (Version 2)
Quarter: 2019Q1

REPORT INFORMATION
  Report Type: Spontaneous
  Country: US (occurrence: US)
  Receive Date: 20190107
  Receipt Date: 20190306
  Transmission Date: 20190417
  Serious: No
  Sender: FDA-Public Use
  Company Number: US-PFIZER INC-2019006574

PATIENT
  Age: 68 Year
  Sex: Female

DRUGS (1)
  1. XELJANZ XR [Suspect]
     Active Substance: TOFACITINIB CITRATE
     Dosage: 11 MG, UNK
     Dates: start: 201812

REACTIONS (3)
  - Sinusitis [Unknown]
  - Eye swelling [Unknown]
  - Swollen tongue [Unknown]
